FAERS Safety Report 11192276 (Version 1)
Quarter: 2015Q2

REPORT INFORMATION
  Report Type: Spontaneous
  Country: US (occurrence: None)
  Receive Date: 20150615
  Receipt Date: 20150615
  Transmission Date: 20150821
  Serious: Yes (Hospitalization)
  Sender: FDA-Public Use
  Company Number: None

PATIENT
  Age: 75 Year
  Sex: Male
  Weight: 95.5 kg

DRUGS (2)
  1. VANCOMYCIN [Suspect]
     Active Substance: VANCOMYCIN
     Dosage: FROM 1326-1340
     Route: 042
     Dates: start: 20150525
  2. VANCOMYCIN [Suspect]
     Active Substance: VANCOMYCIN
     Indication: INFECTION
     Dosage: FROM 1326-1340
     Route: 042
     Dates: start: 20150525

REACTIONS (2)
  - Cheyne-Stokes respiration [None]
  - Unresponsive to stimuli [None]

NARRATIVE: CASE EVENT DATE: 20150525
